FAERS Safety Report 11527914 (Version 2)
Quarter: 2015Q4

REPORT INFORMATION
  Report Type: Spontaneous
  Country: US (occurrence: US)
  Receive Date: 20150920
  Receipt Date: 20151007
  Transmission Date: 20160304
  Serious: Yes (Hospitalization)
  Sender: FDA-Public Use
  Company Number: US-AMGEN-USASP2015095280

PATIENT
  Age: 78 Year
  Sex: Female
  Weight: 51.7 kg

DRUGS (1)
  1. PROLIA [Suspect]
     Active Substance: DENOSUMAB
     Indication: OSTEOPOROSIS
     Dosage: 60 MG, ONE TIME DOSE
     Route: 058
     Dates: start: 20150722, end: 20150722

REACTIONS (5)
  - Pruritus [Unknown]
  - Colitis [Recovering/Resolving]
  - Dizziness [Unknown]
  - Skin swelling [Unknown]
  - Skin disorder [Unknown]

NARRATIVE: CASE EVENT DATE: 20150909
